FAERS Safety Report 13153178 (Version 1)
Quarter: 2017Q1

REPORT INFORMATION
  Report Type: Spontaneous
  Country: CA (occurrence: CA)
  Receive Date: 20170126
  Receipt Date: 20170126
  Transmission Date: 20170428
  Serious: Yes (Other)
  Sender: FDA-Public Use
  Company Number: CA-ORION CORPORATION ORION PHARMA-TREX2016-2617

PATIENT
  Age: 53 Year
  Sex: Female

DRUGS (1)
  1. METHOTREXATE (TRADE NAME UNKNOWN) [Suspect]
     Active Substance: METHOTREXATE
     Indication: RHEUMATOID ARTHRITIS
     Route: 065
     Dates: start: 199301, end: 199901

REACTIONS (6)
  - Nasopharyngitis [Not Recovered/Not Resolved]
  - Drug intolerance [Unknown]
  - Pharyngitis streptococcal [Unknown]
  - Infection [Unknown]
  - Dyspnoea [Unknown]
  - Leukopenia [Unknown]
